FAERS Safety Report 14730365 (Version 1)
Quarter: 2018Q2

REPORT INFORMATION
  Report Type: Spontaneous
  Country: US (occurrence: US)
  Receive Date: 20180402
  Receipt Date: 20180402
  Transmission Date: 20180711
  Serious: Yes (Disabling)
  Sender: FDA-Public Use
  Company Number: None

PATIENT
  Age: 40 Year
  Sex: Female
  Weight: 62.1 kg

DRUGS (8)
  1. LEVOTHYROXINE. [Concomitant]
     Active Substance: LEVOTHYROXINE
  2. QUETIAPINE 50MG TABLETS [Suspect]
     Active Substance: QUETIAPINE
     Indication: FATIGUE
     Dosage: QUANTITY:1 TABLET(S); AT BEDTIME?
     Route: 048
  3. QUETIAPINE. [Concomitant]
     Active Substance: QUETIAPINE
  4. VENLAFAXINE [Concomitant]
     Active Substance: VENLAFAXINE HYDROCHLORIDE
  5. MELATONIN [Concomitant]
     Active Substance: MELATONIN
  6. GABAPENTIN. [Concomitant]
     Active Substance: GABAPENTIN
  7. VITAMIN C [Concomitant]
     Active Substance: ASCORBIC ACID
  8. QUETIAPINE 50MG TABLETS [Suspect]
     Active Substance: QUETIAPINE
     Indication: SLEEP DISORDER
     Dosage: QUANTITY:1 TABLET(S); AT BEDTIME?
     Route: 048

REACTIONS (1)
  - Unevaluable event [None]

NARRATIVE: CASE EVENT DATE: 20170131
